FAERS Safety Report 20106741 (Version 1)
Quarter: 2021Q4

REPORT INFORMATION
  Report Type: Spontaneous
  Country: EG (occurrence: EG)
  Receive Date: 20211124
  Receipt Date: 20211124
  Transmission Date: 20220303
  Serious: Yes (Death, Other)
  Sender: FDA-Public Use
  Company Number: EG-SA-SAC20211122000759

PATIENT
  Age: 63 Year
  Sex: Male

DRUGS (11)
  1. ENOXAPARIN SODIUM [Suspect]
     Active Substance: ENOXAPARIN SODIUM
     Indication: Embolism venous
     Dosage: 40 MG, Q12H
     Route: 065
     Dates: start: 20210919, end: 20210927
  2. ENOXAPARIN SODIUM [Suspect]
     Active Substance: ENOXAPARIN SODIUM
     Dosage: 40 MG, QD
  3. LINEZOLID [Suspect]
     Active Substance: LINEZOLID
     Indication: COVID-19 pneumonia
     Dosage: 600 MG, Q12H
     Route: 042
     Dates: start: 20210925, end: 20210929
  4. REMDESIVIR [Concomitant]
     Active Substance: REMDESIVIR
     Dosage: 200 MG, TOTAL
     Route: 042
     Dates: start: 20210922, end: 20210922
  5. REMDESIVIR [Concomitant]
     Active Substance: REMDESIVIR
     Dosage: 100 MG, QD
     Route: 065
     Dates: start: 20210923, end: 20210929
  6. CILASTATIN SODIUM\IMIPENEM [Concomitant]
     Active Substance: CILASTATIN SODIUM\IMIPENEM
     Dosage: 500 MG, Q6H
     Route: 042
     Dates: start: 20210925, end: 20210927
  7. CILASTATIN SODIUM\IMIPENEM [Concomitant]
     Active Substance: CILASTATIN SODIUM\IMIPENEM
     Dosage: UNK, Q8H (ONE VIAL)
     Route: 042
     Dates: start: 20210927
  8. METHYLPREDNISOLONE [Concomitant]
     Active Substance: METHYLPREDNISOLONE
     Dosage: 1.4 CM, QD
     Route: 042
     Dates: start: 20210919, end: 20210923
  9. METHYLPREDNISOLONE [Concomitant]
     Active Substance: METHYLPREDNISOLONE
     Dosage: 2 CM, Q12H
     Route: 042
     Dates: start: 20210925
  10. LEVOFLOTANET [Concomitant]
     Dosage: UNK UNK, QD
     Route: 042
     Dates: start: 20210925, end: 20210927
  11. LEVOFLOTANET [Concomitant]
     Dosage: UNK, QOD (EVERY 48 HOURS)
     Route: 042
     Dates: start: 20210928

REACTIONS (10)
  - COVID-19 [Fatal]
  - Thrombocytopenia [Fatal]
  - Platelet count decreased [Fatal]
  - Sepsis [Unknown]
  - Mouth haemorrhage [Fatal]
  - Blood creatinine increased [Unknown]
  - Bacterial infection [Unknown]
  - Metabolic acidosis [Unknown]
  - White blood cell count increased [Unknown]
  - Neutrophil count increased [Unknown]

NARRATIVE: CASE EVENT DATE: 20210928
